FAERS Safety Report 8773663 (Version 2)
Quarter: 2012Q4

REPORT INFORMATION
  Report Type: 
  Country: FR (occurrence: FR)
  Receive Date: 20120907
  Receipt Date: 20121008
  Transmission Date: 20130627
  Serious: Yes (Other)
  Sender: FDA-Public Use
  Company Number: PHHY2012FR076311

PATIENT
  Age: 78 Year
  Sex: Male
  Weight: 61 kg

DRUGS (11)
  1. EXJADE [Suspect]
     Indication: HAEMOCHROMATOSIS
     Dosage: UNK UKN, UNK
     Route: 048
     Dates: start: 2009
  2. EXJADE [Suspect]
     Dosage: 500 mg, TID
     Route: 048
     Dates: start: 20120507, end: 20120608
  3. EXJADE [Suspect]
     Dosage: 500 mg, TID
     Route: 048
     Dates: start: 20120720
  4. EXJADE [Suspect]
     Dosage: 250 mg, TID
     Route: 048
     Dates: start: 20120831
  5. VIDAZA [Suspect]
     Dosage: UNK UKN, UNK
  6. DIURETICS [Concomitant]
     Dosage: UNK UKN, UNK
     Dates: end: 2012
  7. COKENZEN [Concomitant]
     Indication: HYPERTENSION
     Dosage: 1 DF, daily
     Route: 048
  8. BURINEX [Concomitant]
     Indication: CARDIAC FAILURE
     Dosage: 4 mg, daily
     Route: 048
  9. NEBILOX [Concomitant]
     Indication: RIGHT VENTRICULAR FAILURE
     Dosage: 1 DF, daily
     Route: 048
  10. LEXOMIL [Concomitant]
     Dosage: 0.25 DF, daily
     Route: 048
  11. FOLIC ACID [Concomitant]
     Dosage: 5 mg, daily
     Route: 048

REACTIONS (5)
  - Dehydration [Recovering/Resolving]
  - Renal failure [Recovering/Resolving]
  - Proteinuria [Recovering/Resolving]
  - Blood creatinine increased [Recovering/Resolving]
  - Creatinine renal clearance decreased [Recovering/Resolving]
